FAERS Safety Report 9508647 (Version 1)
Quarter: 2013Q1

REPORT INFORMATION
  Report Type: Spontaneous
  Country: US (occurrence: None)
  Receive Date: 20130305
  Receipt Date: 20130305
  Transmission Date: 20140127
  Serious: No
  Sender: FDA-Public Use
  Company Number: 163-21880-12082181

PATIENT
  Sex: Female

DRUGS (2)
  1. REVLIMID (LENALIDOMIDE) (15 MILLIGRAM, CAPSULES) [Suspect]
     Indication: PLASMA CELL MYELOMA
     Dosage: 15MG, 21 IN 21D, PO
     Route: 048
     Dates: start: 20111212
  2. ARANESP (DARBEPOET IN ALFA) [Concomitant]

REACTIONS (1)
  - Colitis [None]
